FAERS Safety Report 10194505 (Version 1)
Quarter: 2014Q2

REPORT INFORMATION
  Report Type: Spontaneous
  Country: US (occurrence: US)
  Receive Date: 20140526
  Receipt Date: 20140526
  Transmission Date: 20141212
  Serious: No
  Sender: FDA-Public Use
  Company Number: US-BIOGENIDEC-2014BI043359

PATIENT
  Age: 60 Year
  Sex: Female
  Weight: 61 kg

DRUGS (11)
  1. TECFIDERA [Suspect]
     Indication: PRODUCT USED FOR UNKNOWN INDICATION
     Route: 048
     Dates: start: 20140325
  2. AMPYRA [Concomitant]
     Indication: MULTIPLE SCLEROSIS
     Route: 048
  3. LYRICA [Concomitant]
     Route: 048
  4. BACLOFEN [Concomitant]
     Route: 048
  5. RECLAST [Concomitant]
  6. CRESTOR [Concomitant]
     Route: 048
  7. VENLAFAXINE [Concomitant]
     Route: 048
  8. OMEPRAZOLE [Concomitant]
  9. VITAMIN D [Concomitant]
  10. KRILL OMEGA RED OIL [Concomitant]
     Route: 048
  11. VITAMIN B-12 [Concomitant]
     Route: 048

REACTIONS (7)
  - Depression [Recovered/Resolved]
  - Confusional state [Recovered/Resolved]
  - Dizziness [Recovered/Resolved]
  - Asthenia [Recovered/Resolved]
  - Headache [Recovered/Resolved]
  - Pruritus [Recovered/Resolved]
  - Rash [Recovered/Resolved]
